FAERS Safety Report 8803424 (Version 2)
Quarter: 2012Q4

REPORT INFORMATION
  Report Type: 
  Country: US (occurrence: US)
  Receive Date: 20120924
  Receipt Date: 20121227
  Transmission Date: 20130627
  Serious: No
  Sender: FDA-Public Use
  Company Number: US-009507513-1209USA008229

PATIENT
  Sex: Female

DRUGS (4)
  1. REBETOL [Suspect]
     Indication: HEPATITIS C
     Dosage: UNK
     Dates: start: 20081101, end: 20090201
  2. REBETOL [Suspect]
     Dosage: UNK
     Dates: start: 20120831, end: 20121116
  3. PEGASYS [Suspect]
     Indication: HEPATITIS C
     Dosage: UNK
     Dates: start: 20081101, end: 20090201
  4. PEGASYS [Suspect]
     Dosage: UNK
     Dates: start: 20120831, end: 20121116

REACTIONS (5)
  - Blood count abnormal [Unknown]
  - White blood cell count decreased [Unknown]
  - White blood cell count decreased [Unknown]
  - Drug ineffective [Unknown]
  - Drug ineffective [Unknown]
